FAERS Safety Report 7664118 (Version 3)
Quarter: 2012Q4

REPORT INFORMATION
  Report Type: 
  Country: US (occurrence: US)
  Receive Date: 20101111
  Receipt Date: 20120910
  Transmission Date: 20130627
  Serious: Yes (Hospitalization)
  Sender: FDA-Public Use
  Company Number: US-US-EMD SERONO, INC.-7025811

PATIENT
  Age: 47 None
  Sex: Female
  Weight: 82 kg

DRUGS (8)
  1. REBIF [Suspect]
     Indication: MULTIPLE SCLEROSIS
     Route: 058
     Dates: start: 20100303
  2. NEURONTIN [Concomitant]
     Indication: MULTIPLE SCLEROSIS
  3. ZANAFLEX [Concomitant]
     Indication: MULTIPLE SCLEROSIS
  4. XANAX [Concomitant]
     Indication: ANXIETY
  5. XANAX [Concomitant]
     Indication: AGORAPHOBIA
  6. LAMICTAL [Concomitant]
     Indication: BIPOLAR DISORDER
  7. CELEXA [Concomitant]
     Indication: DEPRESSION
  8. GLUCOPHAGE [Concomitant]
     Indication: DIABETES MELLITUS

REACTIONS (5)
  - Cerebral thrombosis [Recovered/Resolved]
  - Carotid artery occlusion [Recovered/Resolved]
  - Cerebrovascular accident [Recovered/Resolved]
  - Blood cholesterol abnormal [Recovered/Resolved]
  - Blood triglycerides abnormal [Recovered/Resolved]
